FAERS Safety Report 10156245 (Version 3)
Quarter: 2014Q2

REPORT INFORMATION
  Report Type: Spontaneous
  Country: TR (occurrence: TR)
  Receive Date: 20140507
  Receipt Date: 20140521
  Transmission Date: 20141212
  Serious: Yes (Hospitalization)
  Sender: FDA-Public Use
  Company Number: TR-AMGEN INC.-TURSP2014029419

PATIENT
  Age: 36 Year
  Sex: Male
  Weight: 84 kg

DRUGS (1)
  1. ENBREL [Suspect]
     Indication: ANKYLOSING SPONDYLITIS
     Dosage: 50 MG, UNK
     Route: 065
     Dates: end: 2014

REACTIONS (6)
  - Pain [Not Recovered/Not Resolved]
  - Pruritus [Recovered/Resolved]
  - Swelling [Recovered/Resolved]
  - Skin exfoliation [Recovered/Resolved]
  - Influenza [Unknown]
  - Wound [Unknown]
